FAERS Safety Report 25595700 (Version 1)
Quarter: 2025Q3

REPORT INFORMATION
  Report Type: Spontaneous
  Country: EU (occurrence: EU)
  Receive Date: 20250723
  Receipt Date: 20250723
  Transmission Date: 20251021
  Serious: Yes (Other)
  Sender: BAYER HEALTHCARE PHARMACEUTICALS INC.
  Company Number: EU-BAYER-2025A094951

PATIENT
  Age: 43 Year
  Sex: Female

DRUGS (1)
  1. LEVONORGESTREL [Suspect]
     Active Substance: LEVONORGESTREL
     Route: 015

REACTIONS (9)
  - Endometriosis [Not Recovered/Not Resolved]
  - Adenomyosis [None]
  - Abdominal pain lower [None]
  - Nausea [None]
  - Abdominal pain upper [None]
  - Irritable bowel syndrome [None]
  - Chronic fatigue syndrome [None]
  - Heart rate increased [None]
  - Amenorrhoea [None]
